FAERS Safety Report 8014361-8 (Version None)
Quarter: 2011Q4

REPORT INFORMATION
  Report Type: 
  Country: None (occurrence: None)
  Receive Date: 20111229
  Receipt Date: 20111220
  Transmission Date: 20120403
  Serious: Yes (Hospitalization)
  Sender: FDA-Public Use
  Company Number: PHHY2011IT110532

PATIENT
  Sex: Male

DRUGS (5)
  1. ALLOPURINOL [Suspect]
     Indication: HYPERURICAEMIA
     Dosage: 300 MG, EVERY OTHER DAY
     Dates: start: 20110512, end: 20111111
  2. ENALAPRIL MALEATE AND HYDROCHLOROTHIAZIDE [Concomitant]
     Dosage: 32.5 MG, UNK
  3. ESOMEPRAZOLE SODIUM [Concomitant]
  4. GLEEVEC [Suspect]
     Indication: CHRONIC MYELOID LEUKAEMIA
     Dosage: 400 MG, DAILY
     Route: 048
     Dates: start: 20110512, end: 20110803
  5. MEDROL [Concomitant]
     Dosage: UNK UKN, UNK
     Dates: end: 20110906

REACTIONS (1)
  - ECZEMA [None]
